FAERS Safety Report 5239430-7 (Version None)
Quarter: 2007Q1

REPORT INFORMATION
  Report Type: 
  Country: None (occurrence: None)
  Receive Date: 20070216
  Receipt Date: 20070214
  Transmission Date: 20070707
  Serious: Yes (Death)
  Sender: FDA-Public Use
  Company Number: HQWYE120211JAN07

PATIENT
  Sex: Female
  Weight: 76.27 kg

DRUGS (7)
  1. EFFEXOR XR [Suspect]
     Dosage: 75 MG FREQUENCY UNSPECIFIED
     Route: 048
     Dates: start: 20060525, end: 20061101
  2. FOSAMAX [Concomitant]
     Indication: OSTEOPOROSIS
  3. XANAX [Concomitant]
     Indication: ANXIETY
     Dosage: 2 MG 1/2 BID PRN
  4. CRESTOR [Concomitant]
     Indication: HYPERLIPIDAEMIA
  5. LYRICA [Concomitant]
     Indication: NEUROPATHY
     Dosage: 50 MG QHS
  6. ALCOHOL [Suspect]
     Dosage: FREQUENCY UNSPECIFIED
  7. LISINOPRIL [Concomitant]
     Indication: HYPERTENSION

REACTIONS (1)
  - CARDIAC FAILURE [None]
